FAERS Safety Report 25040359 (Version 2)
Quarter: 2025Q1

REPORT INFORMATION
  Report Type: Spontaneous
  Country: JP (occurrence: JP)
  Receive Date: 20250305
  Receipt Date: 20250326
  Transmission Date: 20250409
  Serious: Yes (Other)
  Sender: MERCK SHARP & DOHME LLC
  Company Number: JP-009507513-2260702

PATIENT
  Sex: Female

DRUGS (2)
  1. KEYTRUDA [Suspect]
     Active Substance: PEMBROLIZUMAB
     Dosage: 200MG ? 1/3 WEEKS
     Route: 041
  2. CISPLATIN [Concomitant]
     Active Substance: CISPLATIN

REACTIONS (1)
  - Neutropenia [Unknown]
